FAERS Safety Report 14045188 (Version 1)
Quarter: 2017Q4

REPORT INFORMATION
  Report Type: Spontaneous
  Country: US (occurrence: US)
  Receive Date: 20171005
  Receipt Date: 20171005
  Transmission Date: 20180321
  Serious: No
  Sender: FDA-Public Use
  Company Number: US-INDIVIOR LIMITED-INDV-102179-2017

PATIENT
  Sex: Female

DRUGS (1)
  1. SUBOXONE [Suspect]
     Active Substance: BUPRENORPHINE HYDROCHLORIDE\NALOXONE HYDROCHLORIDE
     Indication: DRUG USE DISORDER
     Dosage: UNKNOWN (ABOUT 2-3 MG, DAILY BY CUTTING
     Route: 065

REACTIONS (6)
  - Product preparation error [Unknown]
  - Cough [Unknown]
  - Drug dependence [Unknown]
  - Enuresis [Unknown]
  - Substance abuse [Unknown]
  - Malaise [Unknown]
